FAERS Safety Report 6794782-1 (Version None)
Quarter: 2010Q2

REPORT INFORMATION
  Report Type: 
  Country: None (occurrence: None)
  Receive Date: 20100625
  Receipt Date: 20100618
  Transmission Date: 20101027
  Serious: Yes (Hospitalization, Other)
  Sender: FDA-Public Use
  Company Number: JP-BRISTOL-MYERS SQUIBB COMPANY-15114218

PATIENT
  Age: 63 Year
  Sex: Male

DRUGS (5)
  1. IRBETAN [Suspect]
     Indication: ESSENTIAL HYPERTENSION
     Route: 048
     Dates: start: 20090807
  2. CRESTOR [Suspect]
     Indication: HYPERLIPIDAEMIA
     Route: 048
     Dates: start: 20081008
  3. CRESTOR [Suspect]
     Indication: VENTRICULAR HYPERTROPHY
     Route: 048
     Dates: start: 20081008
  4. CRESTOR [Suspect]
     Indication: HYPERCHOLESTEROLAEMIA
     Route: 048
     Dates: start: 20081008
  5. ADALAT [Concomitant]
     Indication: ESSENTIAL HYPERTENSION
     Route: 048

REACTIONS (1)
  - INTERSTITIAL LUNG DISEASE [None]
